FAERS Safety Report 8870063 (Version 1)
Quarter: 2012Q4

REPORT INFORMATION
  Report Type: 
  Country: FR (occurrence: FR)
  Receive Date: 20121028
  Receipt Date: 20121028
  Transmission Date: 20130627
  Serious: Yes (Hospitalization)
  Sender: FDA-Public Use
  Company Number: FR-MYLANLABS-2012S1022210

PATIENT
  Age: 17 Year
  Sex: Male

DRUGS (7)
  1. OMEPRAZOLE [Suspect]
     Indication: GASTROOESOPHAGEAL REFLUX DISEASE
  2. TACROLIMUS [Interacting]
     Indication: IMMUNOSUPPRESSION
  3. TACROLIMUS [Interacting]
     Indication: IMMUNOSUPPRESSION
  4. BASILIXIMAB [Concomitant]
     Indication: IMMUNOSUPPRESSION
  5. MYCOPHENOLATE [Concomitant]
     Indication: IMMUNOSUPPRESSION
  6. METHYLPREDNISOLONE [Concomitant]
     Indication: IMMUNOSUPPRESSION
  7. VALGANCICLOVIR [Concomitant]
     Indication: PROPHYLAXIS

REACTIONS (3)
  - Drug interaction [Recovered/Resolved]
  - Drug level increased [Recovered/Resolved]
  - Nephropathy toxic [Recovered/Resolved]
